FAERS Safety Report 14433246 (Version 1)
Quarter: 2018Q1

REPORT INFORMATION
  Report Type: Spontaneous
  Country: US (occurrence: US)
  Receive Date: 20180124
  Receipt Date: 20180124
  Transmission Date: 20180509
  Serious: Yes (Hospitalization)
  Sender: FDA-Public Use
  Company Number: US-PIRAMAL CRITICAL CARE LIMITED-T201204238

PATIENT

DRUGS (2)
  1. GABLOFEN [Suspect]
     Active Substance: BACLOFEN
     Dosage: 513.5 ?G, QD
     Route: 037
  2. GABLOFEN [Suspect]
     Active Substance: BACLOFEN
     Indication: MUSCLE SPASTICITY
     Dosage: 848 MCG/DAY
     Route: 037

REACTIONS (9)
  - Device failure [Unknown]
  - Implant site infection [Unknown]
  - Pyrexia [Unknown]
  - Cerebrospinal fluid leakage [Unknown]
  - Hypertonia [Unknown]
  - Swelling [Unknown]
  - Administration site odour [Unknown]
  - Adhesion [Unknown]
  - Drug ineffective [Unknown]
